FAERS Safety Report 12010109 (Version 1)
Quarter: 2016Q1

REPORT INFORMATION
  Report Type: Spontaneous
  Country: US (occurrence: None)
  Receive Date: 20160204
  Receipt Date: 20160204
  Transmission Date: 20160526
  Serious: No
  Sender: FDA-Public Use
  Company Number: None

PATIENT
  Age: 74 Year
  Sex: Female
  Weight: 76.66 kg

DRUGS (7)
  1. ACETAMINOPEHN CODEINE #4 [Concomitant]
  2. AZOPT [Suspect]
     Active Substance: BRINZOLAMIDE
  3. TRAVOPROST [Concomitant]
     Active Substance: TRAVOPROST
  4. AMOXICILLIN 500MG CAPSULE SANDOZ [Suspect]
     Active Substance: AMOXICILLIN
     Indication: INFECTION PROPHYLAXIS
     Route: 048
     Dates: start: 20150921, end: 20151001
  5. ALPHAGAN P [Concomitant]
     Active Substance: BRIMONIDINE TARTRATE
  6. DILTIAZEM [Concomitant]
     Active Substance: DILTIAZEM
  7. CENTRUM SILVER [Concomitant]
     Active Substance: MINERALS\VITAMINS

REACTIONS (4)
  - Pruritus generalised [None]
  - Hair texture abnormal [None]
  - Immune system disorder [None]
  - Alopecia [None]
